FAERS Safety Report 16655509 (Version 1)
Quarter: 2019Q3

REPORT INFORMATION
  Report Type: Spontaneous
  Country: US (occurrence: US)
  Receive Date: 20190801
  Receipt Date: 20190801
  Transmission Date: 20191004
  Serious: No
  Sender: FDA-Public Use
  Company Number: US-JNJFOC-20190737792

PATIENT
  Age: 78 Year
  Sex: Male
  Weight: 86.26 kg

DRUGS (1)
  1. ZYRTEC [Suspect]
     Active Substance: CETIRIZINE HYDROCHLORIDE
     Indication: URTICARIA
     Dosage: DATE OF LAST ADMIN: 23-JUL-2019
     Route: 048

REACTIONS (1)
  - Product use in unapproved indication [Unknown]
